FAERS Safety Report 18762870 (Version 2)
Quarter: 2021Q1

REPORT INFORMATION
  Report Type: Spontaneous
  Country: US (occurrence: US)
  Receive Date: 20210120
  Receipt Date: 20210128
  Transmission Date: 20210419
  Serious: Yes (Other)
  Sender: FDA-Public Use
  Company Number: US-ALKERMES INC.-ALK-2021-000022

PATIENT
  Age: 53 Year
  Sex: Female

DRUGS (3)
  1. OTHER THERAPEUTIC PRODUCTS [Concomitant]
     Active Substance: UNSPECIFIED INGREDIENT
     Indication: ALCOHOLISM
     Dosage: UNK
     Route: 065
     Dates: start: 202101
  2. VIVITROL [Suspect]
     Active Substance: NALTREXONE
     Indication: ALCOHOLISM
     Dosage: 380 MILLIGRAM, QMO
     Route: 030
     Dates: end: 202101
  3. VIVITROL [Suspect]
     Active Substance: NALTREXONE
     Dosage: 380 MILLIGRAM, QMO
     Route: 030
     Dates: start: 20200810, end: 20200810

REACTIONS (8)
  - Injection site erythema [Unknown]
  - Cyst [Unknown]
  - Injection site pain [Not Recovered/Not Resolved]
  - Injection site abscess [Unknown]
  - Injection site reaction [Not Recovered/Not Resolved]
  - Infection [Unknown]
  - Injection site induration [Unknown]
  - Injection site mass [Unknown]

NARRATIVE: CASE EVENT DATE: 202101
